FAERS Safety Report 9797926 (Version 2)
Quarter: 2014Q1

REPORT INFORMATION
  Report Type: Spontaneous
  Country: US (occurrence: US)
  Receive Date: 20140106
  Receipt Date: 20140123
  Transmission Date: 20141002
  Serious: Yes (Other)
  Sender: FDA-Public Use
  Company Number: US-JNJFOC-20131217831

PATIENT
  Age: 23 Year
  Sex: Male

DRUGS (3)
  1. TRAMADOL HYDROCHLORIDE [Suspect]
     Indication: ARTHRALGIA
     Route: 048
  2. DURAGESIC [Suspect]
     Indication: ARTHRALGIA
     Dosage: 25MCG/PATCH/25MCG/U/TD
     Route: 062
     Dates: start: 201312
  3. NUCYNTA IR [Suspect]
     Indication: ARTHRALGIA
     Dosage: 150MG EVERY 3 HOURS
     Route: 048
     Dates: start: 201312

REACTIONS (2)
  - Ankle operation [Unknown]
  - Overdose [Unknown]
